FAERS Safety Report 16195505 (Version 2)
Quarter: 2019Q2

REPORT INFORMATION
  Report Type: Spontaneous
  Country: CN (occurrence: CN)
  Receive Date: 20190415
  Receipt Date: 20190528
  Transmission Date: 20190711
  Serious: Yes (Hospitalization, Other)
  Sender: FDA-Public Use
  Company Number: CN-ROCHE-2296441

PATIENT
  Age: 52 Year
  Sex: Male

DRUGS (7)
  1. OXALIPLATIN. [Suspect]
     Active Substance: OXALIPLATIN
     Indication: RECTAL CANCER
     Dosage: DAY1
     Route: 041
     Dates: start: 20170323, end: 20170526
  2. XELODA [Suspect]
     Active Substance: CAPECITABINE
     Indication: RECTAL CANCER
     Dosage: FOR 14 DAYS
     Route: 065
     Dates: start: 20170323, end: 20170526
  3. XELODA [Suspect]
     Active Substance: CAPECITABINE
     Indication: METASTASES TO LIVER
     Dosage: FOR 14 DAYS
     Route: 065
     Dates: start: 20170818, end: 20171205
  4. OXALIPLATIN. [Suspect]
     Active Substance: OXALIPLATIN
     Indication: METASTASES TO LIVER
     Dosage: DAY1
     Route: 041
     Dates: start: 20170818, end: 20171205
  5. XELODA [Suspect]
     Active Substance: CAPECITABINE
     Indication: METASTASES TO LUNG
     Route: 065
     Dates: start: 201801
  6. INSULIN [Concomitant]
     Active Substance: INSULIN NOS
  7. OXALIPLATIN. [Suspect]
     Active Substance: OXALIPLATIN
     Indication: METASTASES TO LUNG

REACTIONS (5)
  - Protein urine present [Unknown]
  - Device dislocation [Unknown]
  - Intestinal obstruction [Unknown]
  - Vomiting [Unknown]
  - Gastrointestinal disorder [Unknown]
